FAERS Safety Report 6539481-6 (Version None)
Quarter: 2010Q1

REPORT INFORMATION
  Report Type: 
  Country: None (occurrence: None)
  Receive Date: 20100115
  Receipt Date: 20100106
  Transmission Date: 20100710
  Serious: Yes (Death)
  Sender: FDA-Public Use
  Company Number: A0835684A

PATIENT
  Age: 77 Year
  Sex: Male

DRUGS (8)
  1. PROMACTA [Suspect]
     Indication: IDIOPATHIC THROMBOCYTOPENIC PURPURA
     Dosage: 50MG PER DAY
     Route: 048
     Dates: start: 20091101, end: 20091201
  2. REQUIP [Concomitant]
     Indication: PARKINSON'S DISEASE
     Dosage: .5MG PER DAY
     Route: 048
     Dates: start: 20080101
  3. SIMVASTATIN [Concomitant]
  4. ZESTRIL [Concomitant]
  5. GLIPIZIDE [Concomitant]
  6. LORTAB [Concomitant]
  7. LYRICA [Concomitant]
  8. NITROGLYCERIN [Concomitant]
     Route: 060

REACTIONS (1)
  - DEATH [None]
